FAERS Safety Report 21981112 (Version 2)
Quarter: 2023Q1

REPORT INFORMATION
  Report Type: Report from Study
  Country: ZA (occurrence: ZA)
  Receive Date: 20230211
  Receipt Date: 20230214
  Transmission Date: 20230418
  Serious: Yes (Hospitalization)
  Sender: FDA-Public Use
  Company Number: ZA-002147023-NVSC2023ZA029598

PATIENT
  Age: 81 Year
  Sex: Female

DRUGS (2)
  1. BROLUCIZUMAB [Suspect]
     Active Substance: BROLUCIZUMAB
     Indication: Macular degeneration
     Dosage: 27.6 MG, QMO (OTHER DOSAGE 27.6 MG IN 0.23 ML)
     Route: 047
     Dates: start: 20220330
  2. BROLUCIZUMAB [Suspect]
     Active Substance: BROLUCIZUMAB
     Indication: Neovascular age-related macular degeneration
     Dosage: 27.6 MG, QMO (OTHER DOSAGE 27.6 MG IN 0.23 ML)
     Route: 047

REACTIONS (1)
  - Illness [Unknown]
